FAERS Safety Report 9783369 (Version 2)
Quarter: 2014Q4

REPORT INFORMATION
  Report Type: Spontaneous
  Country: US (occurrence: US)
  Receive Date: 20131226
  Receipt Date: 20141015
  Transmission Date: 20150529
  Serious: Yes (Hospitalization, Other)
  Sender: FDA-Public Use
  Company Number: US-BAYER-2013-156702

PATIENT
  Age: 34 Year
  Sex: Female
  Weight: 85.71 kg

DRUGS (16)
  1. BENADRYL [Concomitant]
     Active Substance: DIPHENHYDRAMINE HYDROCHLORIDE
  2. NEURONTIN [Concomitant]
     Active Substance: GABAPENTIN
  3. YASMIN [Suspect]
     Active Substance: DROSPIRENONE\ETHINYL ESTRADIOL
     Indication: PREMENSTRUAL SYNDROME
  4. TENORMIN [Concomitant]
     Active Substance: ATENOLOL
  5. PERSANTINE [Concomitant]
     Active Substance: DIPYRIDAMOLE
  6. REQUIP [Concomitant]
     Active Substance: ROPINIROLE HYDROCHLORIDE
  7. ACIPHEX [Concomitant]
     Active Substance: RABEPRAZOLE SODIUM
  8. NIFEDIPINE. [Concomitant]
     Active Substance: NIFEDIPINE
  9. LIPITOR [Concomitant]
     Active Substance: ATORVASTATIN CALCIUM
  10. ATENOLOL. [Concomitant]
     Active Substance: ATENOLOL
  11. ALAVERT ALLERGY [Concomitant]
     Active Substance: LORATADINE
  12. VICODIN [Concomitant]
     Active Substance: ACETAMINOPHEN\HYDROCODONE BITARTRATE
  13. HYZAAR [Concomitant]
     Active Substance: HYDROCHLOROTHIAZIDE\LOSARTAN POTASSIUM
  14. PHENTANYL [Concomitant]
     Active Substance: FENTANYL
     Dosage: 25 MG, EVERY 3 DAYS
     Dates: start: 20060921
  15. YASMIN [Suspect]
     Active Substance: DROSPIRENONE\ETHINYL ESTRADIOL
     Indication: ACNE
     Dosage: UNK
     Dates: start: 2003, end: 2006
  16. XANAX [Concomitant]
     Active Substance: ALPRAZOLAM

REACTIONS (10)
  - Premenstrual syndrome [Not Recovered/Not Resolved]
  - Leriche syndrome [None]
  - Pulmonary embolism [None]
  - Cholelithiasis [None]
  - Thrombosis [Not Recovered/Not Resolved]
  - Drug ineffective [None]
  - Truncus coeliacus thrombosis [None]
  - Thrombosis [None]
  - Aortic thrombosis [Not Recovered/Not Resolved]
  - Abdominal pain [None]

NARRATIVE: CASE EVENT DATE: 2006
